FAERS Safety Report 21550861 (Version 1)
Quarter: 2022Q4

REPORT INFORMATION
  Report Type: Spontaneous
  Country: US (occurrence: None)
  Receive Date: 20221103
  Receipt Date: 20221103
  Transmission Date: 20230113
  Serious: Yes (Other)
  Sender: FDA-Public Use
  Company Number: US-Merck Healthcare KGaA-9361853

PATIENT
  Age: 75 Year
  Sex: Female

DRUGS (3)
  1. TEPMETKO [Suspect]
     Active Substance: TEPOTINIB HYDROCHLORIDE
     Indication: Lung neoplasm malignant
  2. TEPMETKO [Suspect]
     Active Substance: TEPOTINIB HYDROCHLORIDE
     Dates: start: 202209
  3. MORPHINE [Suspect]
     Active Substance: MORPHINE
     Indication: Product used for unknown indication

REACTIONS (6)
  - Metastases to central nervous system [Unknown]
  - Fatigue [Unknown]
  - Dyspnoea [Recovered/Resolved]
  - Radiation injury [Unknown]
  - Radiation skin injury [Unknown]
  - Nausea [Unknown]
